FAERS Safety Report 4341647-0 (Version None)
Quarter: 2004Q2

REPORT INFORMATION
  Report Type: 
  Country: None (occurrence: None)
  Receive Date: 20040420
  Receipt Date: 20040419
  Transmission Date: 20050107
  Serious: Yes (Death)
  Sender: FDA-Public Use
  Company Number: NO-ROCHE-364644

PATIENT
  Age: 42 Year
  Sex: Female

DRUGS (1)
  1. XELODA [Suspect]
     Indication: BREAST CANCER METASTATIC
     Route: 048
     Dates: start: 20040204, end: 20040215

REACTIONS (3)
  - HEPATIC NECROSIS [None]
  - MULTI-ORGAN FAILURE [None]
  - RENAL FAILURE [None]
